FAERS Safety Report 18373419 (Version 1)
Quarter: 2020Q4

REPORT INFORMATION
  Report Type: Spontaneous
  Country: ES (occurrence: ES)
  Receive Date: 20201012
  Receipt Date: 20201012
  Transmission Date: 20210114
  Serious: Yes (Other)
  Sender: FDA-Public Use
  Company Number: NVSC2020ES269940

PATIENT
  Age: 17 Year
  Sex: Male
  Weight: 83 kg

DRUGS (1)
  1. KYMRIAH [Suspect]
     Active Substance: TISAGENLECLEUCEL
     Indication: B PRECURSOR TYPE ACUTE LEUKAEMIA
     Dosage: (1,2 X 10E6 - 6,0 X 10E8 CELULAS DISPERSION PARA PERFUSION 1-3 BOLSAS DE PERFUSION (1 DOSIS DE TRATA
     Route: 042
     Dates: start: 20200602, end: 20200602

REACTIONS (4)
  - Coagulopathy [Recovered/Resolved]
  - Pyrexia [Recovered/Resolved]
  - Clostridium difficile colitis [Recovered/Resolved]
  - Cytokine release syndrome [Recovered/Resolved]

NARRATIVE: CASE EVENT DATE: 20200604
